FAERS Safety Report 9674756 (Version 1)
Quarter: 2013Q4

REPORT INFORMATION
  Report Type: Spontaneous
  Country: US (occurrence: None)
  Receive Date: 20131106
  Receipt Date: 20131106
  Transmission Date: 20140711
  Serious: Yes (Congenital Anomaly)
  Sender: FDA-Public Use
  Company Number: None

PATIENT
  Age: 1 Day
  Sex: Male
  Weight: 2.72 kg

DRUGS (1)
  1. YAZ [Suspect]
     Indication: CONTRACEPTION
     Route: 048
     Dates: end: 20081001

REACTIONS (9)
  - Oesophageal atresia [None]
  - Choanal atresia [None]
  - Micrognathia [None]
  - Microtia [None]
  - Deafness [None]
  - Cleft palate [None]
  - Foot deformity [None]
  - Developmental delay [None]
  - Maternal drugs affecting foetus [None]
